FAERS Safety Report 5158356-0 (Version None)
Quarter: 2006Q4

REPORT INFORMATION
  Report Type: 
  Country: None (occurrence: None)
  Receive Date: 20061128
  Receipt Date: 20051003
  Transmission Date: 20070319
  Serious: No
  Sender: FDA-Public Use
  Company Number: US-GLAXOSMITHKLINE-A0576727A

PATIENT
  Age: 73 Year
  Sex: Female

DRUGS (10)
  1. LANOXIN [Suspect]
     Indication: ARRHYTHMIA
     Dosage: .125MG PER DAY
     Route: 048
     Dates: start: 20050924
  2. PREDNISONE TAB [Concomitant]
  3. FOLIC ACID [Concomitant]
  4. FOSAMAX [Concomitant]
  5. VICODIN [Concomitant]
  6. TRAMADOL HCL [Concomitant]
  7. HYDROCODONE [Concomitant]
  8. ARTHROTEC [Concomitant]
  9. PROTHIAZIDE [Concomitant]
  10. UNKNOWN MEDICATION [Concomitant]

REACTIONS (1)
  - HEART RATE INCREASED [None]
